FAERS Safety Report 8448076-9 (Version None)
Quarter: 2012Q2

REPORT INFORMATION
  Report Type: 
  Country: None (occurrence: None)
  Receive Date: 20120619
  Receipt Date: 20120601
  Transmission Date: 20120825
  Serious: Yes (Death, Hospitalization)
  Sender: FDA-Public Use
  Company Number: JP-CELGENEUS-087-CCAZA-11091875

PATIENT
  Sex: Male
  Weight: 63 kg

DRUGS (35)
  1. NEUTROGIN [Concomitant]
     Dosage: 100 MICROGRAM
     Route: 058
     Dates: start: 20110623, end: 20110708
  2. PRODIF [Concomitant]
     Dosage: 400 MILLIGRAM
     Route: 041
     Dates: start: 20110702, end: 20110708
  3. MINOCYCLINE HCL [Concomitant]
     Dosage: 200 MILLIGRAM
     Route: 041
     Dates: start: 20110720, end: 20110725
  4. VIDAZA [Suspect]
     Indication: MYELODYSPLASTIC SYNDROME
     Dosage: 60 MILLIGRAM/SQ. METER
     Route: 058
     Dates: start: 20110606, end: 20110612
  5. LEVOFLOXACIN [Concomitant]
     Dosage: 500 MILLIGRAM
     Route: 048
     Dates: start: 20110825
  6. MEROPENEM [Concomitant]
     Dosage: 1.5 GRAM
     Route: 041
     Dates: start: 20110711, end: 20110719
  7. URIEF [Concomitant]
     Dosage: 8 MILLIGRAM
     Route: 048
     Dates: start: 20110521
  8. DIOVAN [Concomitant]
     Dosage: 80 MILLIGRAM
     Route: 048
     Dates: start: 20110405
  9. LEVOFLOXACIN [Concomitant]
     Dosage: 500 MILLIGRAM
     Route: 048
     Dates: start: 20110616, end: 20110620
  10. CEFPIROME SULFATE [Concomitant]
     Dosage: 2 GRAM
     Route: 041
     Dates: start: 20110620, end: 20110622
  11. PRODIF [Concomitant]
     Dosage: 400 MILLIGRAM
     Route: 041
     Dates: start: 20110630, end: 20110701
  12. RED BLOOD CELLS [Concomitant]
     Route: 041
     Dates: start: 20110606, end: 20110801
  13. REMINARON [Concomitant]
     Dosage: 600 MILLIGRAM
     Route: 041
     Dates: start: 20110620, end: 20110622
  14. DORIPENEM MONOHYDRATE [Concomitant]
     Dosage: .75 MILLIGRAM
     Route: 041
     Dates: start: 20110801, end: 20110816
  15. MEROPENEM [Concomitant]
     Dosage: 1.5 GRAM
     Route: 041
     Dates: start: 20110817, end: 20110825
  16. NAOTAMIN [Concomitant]
     Dosage: 20 MILLIGRAM
     Route: 041
     Dates: start: 20110720, end: 20110720
  17. ZOSYN [Concomitant]
     Dosage: 13.5 MILLIGRAM
     Route: 041
     Dates: start: 20110725, end: 20110728
  18. ITRACONAZOLE [Concomitant]
     Dosage: 400 MILLIGRAM
     Route: 041
     Dates: start: 20110729, end: 20110730
  19. PLATELETS [Concomitant]
     Route: 041
     Dates: start: 20110606, end: 20110801
  20. VIDAZA [Suspect]
     Dosage: 60 MILLIGRAM/SQ. METER
     Route: 058
     Dates: start: 20120206, end: 20120212
  21. URSO 250 [Concomitant]
     Dosage: 600 MILLIGRAM
     Route: 048
     Dates: start: 20110613
  22. FAMOTIDINE [Concomitant]
     Dosage: 20 MILLIGRAM
     Route: 048
     Dates: start: 20110701
  23. NASPALUN [Concomitant]
     Dosage: 2 GRAM
     Route: 041
     Dates: start: 20110720, end: 20110725
  24. ROMIKACIN [Concomitant]
     Dosage: 400 MILLIGRAM
     Route: 041
     Dates: start: 20110629, end: 20110710
  25. VITAMIN B12 [Concomitant]
     Dosage: 1500 MICROGRAM
     Route: 048
     Dates: start: 20100518
  26. PASIL [Concomitant]
     Dosage: 1000 MILLIGRAM
     Route: 041
     Dates: start: 20110728, end: 20110731
  27. PRIMOBOLAN-DEPOT INJ [Concomitant]
     Dosage: 20 MILLIGRAM
     Route: 048
     Dates: start: 20110518
  28. NASPALUN [Concomitant]
     Dosage: 3 GRAM
     Route: 041
     Dates: start: 20110609, end: 20110613
  29. ITRACONAZOLE [Concomitant]
     Dosage: 200 MILLIGRAM
     Route: 041
     Dates: start: 20110731, end: 20110801
  30. ADONA [Concomitant]
     Dosage: 90 MICROGRAM
     Route: 048
     Dates: start: 20100521
  31. DUTASTERIDE [Concomitant]
     Dosage: .5 MILLIGRAM
     Route: 048
     Dates: start: 20101004
  32. MOTILIUM [Concomitant]
     Dosage: 30 MILLIGRAM
     Route: 048
     Dates: start: 20110609, end: 20110615
  33. FLUCONAZOLE [Concomitant]
     Dosage: 200 MILLIGRAM
     Route: 048
     Dates: start: 20110709
  34. DORIPENEM MONOHYDRATE [Concomitant]
     Dosage: .75 MILLIGRAM
     Route: 041
     Dates: start: 20110623, end: 20110708
  35. ROMIKACIN [Concomitant]
     Dosage: 400 MILLIGRAM
     Route: 041
     Dates: start: 20110802, end: 20110816

REACTIONS (3)
  - PNEUMONIA [None]
  - CHOLANGITIS [None]
  - BILE DUCT STONE [None]
